FAERS Safety Report 5130449-3 (Version None)
Quarter: 2006Q4

REPORT INFORMATION
  Report Type: 
  Country: None (occurrence: None)
  Receive Date: 20061013
  Receipt Date: 20060928
  Transmission Date: 20070319
  Serious: Yes (Hospitalization)
  Sender: FDA-Public Use
  Company Number: US200610000083

PATIENT
  Age: 63 Year
  Sex: Female

DRUGS (6)
  1. HUMULIN R [Suspect]
     Indication: DIABETES MELLITUS
     Dates: start: 19760101
  2. HUMULIN N [Suspect]
     Indication: DIABETES MELLITUS
     Dates: start: 19760101
  3. OTHER ANTIHYPERTENSIVES [Concomitant]
  4. SYNTHROID [Concomitant]
  5. ASPIRIN [Concomitant]
  6. CENTRUM (MINERALS NOS, VITAMINS NOS) [Concomitant]

REACTIONS (9)
  - BREAST CANCER FEMALE [None]
  - CARPAL TUNNEL SYNDROME [None]
  - CATARACT [None]
  - FOOT FRACTURE [None]
  - JOINT SPRAIN [None]
  - MYOCARDIAL INFARCTION [None]
  - RETINOPATHY [None]
  - TRIGGER FINGER [None]
  - VISUAL ACUITY REDUCED [None]
